FAERS Safety Report 16287409 (Version 1)
Quarter: 2019Q2

REPORT INFORMATION
  Report Type: Spontaneous
  Country: US (occurrence: US)
  Receive Date: 20190508
  Receipt Date: 20190508
  Transmission Date: 20190711
  Serious: Yes (Other)
  Sender: FDA-Public Use
  Company Number: US-PFIZER INC-2019053370

PATIENT
  Age: 49 Year
  Sex: Female
  Weight: 134 kg

DRUGS (2)
  1. LEVOTHYROXINE. [Concomitant]
     Active Substance: LEVOTHYROXINE
     Indication: THYROID DISORDER
     Dosage: 1.25 UG, 1X/DAY (ONE TABLET EVERY MORNING)
     Route: 048
  2. LYRICA [Suspect]
     Active Substance: PREGABALIN
     Indication: FIBROMYALGIA
     Dosage: 100 MG, 2X/DAY
     Route: 048
     Dates: start: 2018

REACTIONS (10)
  - Pain [Recovering/Resolving]
  - Anger [Unknown]
  - Crying [Recovering/Resolving]
  - Fear [Unknown]
  - Withdrawal syndrome [Recovering/Resolving]
  - Suicidal ideation [Unknown]
  - Panic attack [Recovering/Resolving]
  - Fatigue [Unknown]
  - Depressed mood [Unknown]
  - Stress [Unknown]

NARRATIVE: CASE EVENT DATE: 20190427
